FAERS Safety Report 7554366-4 (Version None)
Quarter: 2011Q2

REPORT INFORMATION
  Report Type: 
  Country: None (occurrence: None)
  Receive Date: 20110617
  Receipt Date: 20110609
  Transmission Date: 20111010
  Serious: Yes (Death)
  Sender: FDA-Public Use
  Company Number: DE-ALEXION-A201100847

PATIENT
  Sex: Female

DRUGS (1)
  1. SOLIRIS [Suspect]
     Indication: HAEMOLYTIC URAEMIC SYNDROME
     Dosage: 900 MG, SINGLE
     Route: 042
     Dates: start: 20110606

REACTIONS (3)
  - CENTRAL NERVOUS SYSTEM NECROSIS [None]
  - CONDITION AGGRAVATED [None]
  - RESPIRATORY FAILURE [None]
